FAERS Safety Report 24961596 (Version 1)
Quarter: 2025Q1

REPORT INFORMATION
  Report Type: Report from Study
  Country: CO (occurrence: CO)
  Receive Date: 20250212
  Receipt Date: 20250212
  Transmission Date: 20250409
  Serious: Yes (Death, Hospitalization, Other)
  Sender: ALEXION PHARMACEUTICALS
  Company Number: CO-AstraZeneca-CH-00804338A

PATIENT
  Age: 70 Year

DRUGS (1)
  1. DURVALUMAB [Suspect]
     Active Substance: DURVALUMAB
     Indication: Bile duct cancer
     Dosage: 1500 MILLIGRAM, QMONTH

REACTIONS (4)
  - Abdominal pain [Fatal]
  - Upper gastrointestinal haemorrhage [Fatal]
  - Lower gastrointestinal haemorrhage [Fatal]
  - General physical health deterioration [Fatal]
